FAERS Safety Report 13421512 (Version 2)
Quarter: 2017Q2

REPORT INFORMATION
  Report Type: Spontaneous
  Country: US (occurrence: US)
  Receive Date: 20170410
  Receipt Date: 20170510
  Transmission Date: 20170830
  Serious: No
  Sender: FDA-Public Use
  Company Number: US-TEVA-756640ACC

PATIENT
  Age: 34 Year
  Sex: Female

DRUGS (11)
  1. VALTREX [Concomitant]
     Active Substance: VALACYCLOVIR HYDROCHLORIDE
  2. BENADRYL [Concomitant]
     Active Substance: DIPHENHYDRAMINE HYDROCHLORIDE
  3. MOMETASONE [Concomitant]
     Active Substance: MOMETASONE
  4. SYMBICORT [Concomitant]
     Active Substance: BUDESONIDE\FORMOTEROL FUMARATE DIHYDRATE
  5. SUDAFED [Concomitant]
     Active Substance: PSEUDOEPHEDRINE HYDROCHLORIDE
  6. COPAXONE [Suspect]
     Active Substance: GLATIRAMER ACETATE
     Indication: MULTIPLE SCLEROSIS
     Route: 058
     Dates: start: 20120508
  7. TRIPHASIL [Concomitant]
     Active Substance: ETHINYL ESTRADIOL\LEVONORGESTREL
  8. NOVOLOG [Concomitant]
     Active Substance: INSULIN ASPART
  9. AZELASTINE [Concomitant]
     Active Substance: AZELASTINE
  10. MULTIVITAMINS [Concomitant]
     Active Substance: VITAMINS
  11. VENTOLIN [Concomitant]
     Active Substance: ALBUTEROL SULFATE

REACTIONS (2)
  - Chest pain [Not Recovered/Not Resolved]
  - Dyspnoea [Not Recovered/Not Resolved]

NARRATIVE: CASE EVENT DATE: 201702
